FAERS Safety Report 13884593 (Version 1)
Quarter: 2017Q3

REPORT INFORMATION
  Report Type: Report from Study
  Country: US (occurrence: US)
  Receive Date: 20170821
  Receipt Date: 20170821
  Transmission Date: 20171127
  Serious: Yes (Death, Hospitalization)
  Sender: FDA-Public Use
  Company Number: US-BAYER-2017-067918

PATIENT
  Age: 57 Year
  Sex: Female

DRUGS (1)
  1. NEXAVAR [Suspect]
     Active Substance: SORAFENIB
     Indication: ACUTE MYELOID LEUKAEMIA
     Dosage: 200 MG, BID
     Route: 048
     Dates: start: 20170214

REACTIONS (4)
  - Off label use [None]
  - Death [Fatal]
  - Hospitalisation [None]
  - Product use in unapproved indication [None]

NARRATIVE: CASE EVENT DATE: 20170508
